FAERS Safety Report 4368998-8 (Version None)
Quarter: 2004Q2

REPORT INFORMATION
  Report Type: 
  Country: None (occurrence: None)
  Receive Date: 20040525
  Receipt Date: 20040512
  Transmission Date: 20050107
  Serious: Yes (Hospitalization)
  Sender: FDA-Public Use
  Company Number: GB-JNJFOC-20040502121

PATIENT
  Age: 27 Year
  Sex: Male

DRUGS (5)
  1. REMICADE [Suspect]
     Indication: ANKYLOSING SPONDYLITIS
     Dosage: 160 MG, INTRAVENOUS
     Route: 042
     Dates: start: 20030116
  2. NAPROXEN (NEPROXEN) [Concomitant]
  3. CO-CODAMOL (PANADEINE CO) [Concomitant]
  4. COD LIVER OIL (COD-LIVER OIL) [Concomitant]
  5. EVENING PRIMROSE OIL (EVENING PRIMROSE OIL) [Concomitant]

REACTIONS (1)
  - SCHIZOPHRENIA, PARANOID TYPE [None]
